FAERS Safety Report 22073950 (Version 1)
Quarter: 2023Q1

REPORT INFORMATION
  Report Type: Spontaneous
  Country: US (occurrence: None)
  Receive Date: 20230307
  Receipt Date: 20230307
  Transmission Date: 20230418
  Serious: No
  Sender: FDA-Public Use
  Company Number: None

PATIENT
  Sex: Male

DRUGS (1)
  1. ENBREL [Suspect]
     Active Substance: ETANERCEPT
     Indication: Juvenile idiopathic arthritis
     Dosage: OTHER FREQUENCY : EVERY7DAYS;?
     Route: 058
     Dates: start: 20200701

REACTIONS (2)
  - Joint swelling [None]
  - Arthralgia [None]
